FAERS Safety Report 4577866-8 (Version None)
Quarter: 2005Q1

REPORT INFORMATION
  Report Type: 
  Country: None (occurrence: None)
  Receive Date: 20050209
  Receipt Date: 20050127
  Transmission Date: 20050727
  Serious: Yes (Other)
  Sender: FDA-Public Use
  Company Number: 2005022907

PATIENT
  Sex: Female

DRUGS (2)
  1. LOMOTIL [Suspect]
     Indication: DIARRHOEA
     Dosage: (1 IN 3 D), ORAL
     Route: 048
     Dates: start: 20041024
  2. B-KOMPLEX ^LECIVA^ (CALCIUM PANTOTHENATE NICOTINAMIDE, PYRIDOXINE HYDR [Concomitant]

REACTIONS (1)
  - HAIR GROWTH ABNORMAL [None]
